FAERS Safety Report 18538922 (Version 12)
Quarter: 2022Q2

REPORT INFORMATION
  Report Type: Report from Study
  Country: BR (occurrence: BR)
  Receive Date: 20201124
  Receipt Date: 20220530
  Transmission Date: 20220720
  Serious: Yes (Other)
  Sender: FDA-Public Use
  Company Number: NVSC2020BR306059

PATIENT
  Age: 51 Year
  Sex: Female

DRUGS (7)
  1. KISQALI [Suspect]
     Active Substance: RIBOCICLIB
     Indication: Breast cancer female
     Dosage: UNK
     Route: 065
     Dates: start: 20200922
  2. KISQALI [Suspect]
     Active Substance: RIBOCICLIB
     Dosage: 3 DOSAGE FORM, QD
     Route: 065
     Dates: start: 202009
  3. KISQALI [Suspect]
     Active Substance: RIBOCICLIB
     Dosage: UNK
     Route: 065
     Dates: start: 20201020
  4. KISQALI [Suspect]
     Active Substance: RIBOCICLIB
     Dosage: UNK (1 YEAR AND 1 MONTH AGO)
     Route: 065
  5. KISQALI [Suspect]
     Active Substance: RIBOCICLIB
     Dosage: 600 MG
     Route: 065
  6. FEMARA [Suspect]
     Active Substance: LETROZOLE
     Indication: Product used for unknown indication
     Dosage: UNK, (MORNING )
     Route: 065
     Dates: start: 202009
  7. LETROZOLE [Concomitant]
     Active Substance: LETROZOLE
     Indication: Product used for unknown indication
     Dosage: UNK
     Route: 065

REACTIONS (25)
  - Spinal fracture [Not Recovered/Not Resolved]
  - Spinal cord injury [Not Recovered/Not Resolved]
  - Hypothyroidism [Not Recovered/Not Resolved]
  - Diabetes mellitus [Not Recovered/Not Resolved]
  - Full blood count decreased [Recovered/Resolved]
  - Insomnia [Not Recovered/Not Resolved]
  - Decreased immune responsiveness [Recovered/Resolved]
  - Decreased immune responsiveness [Not Recovered/Not Resolved]
  - Anaemia [Not Recovered/Not Resolved]
  - Skin discolouration [Unknown]
  - Dry skin [Unknown]
  - Alopecia [Not Recovered/Not Resolved]
  - Pruritus [Unknown]
  - Sunburn [Unknown]
  - Restlessness [Unknown]
  - Blood glucose increased [Unknown]
  - Glycosylated haemoglobin increased [Recovering/Resolving]
  - Affect lability [Unknown]
  - Crying [Unknown]
  - Mood swings [Unknown]
  - Product label issue [Unknown]
  - Product packaging quantity issue [Unknown]
  - Nausea [Recovering/Resolving]
  - Thyroid disorder [Unknown]
  - COVID-19 [Unknown]

NARRATIVE: CASE EVENT DATE: 20200901
